FAERS Safety Report 13697148 (Version 1)
Quarter: 2017Q2

REPORT INFORMATION
  Report Type: Spontaneous
  Country: US (occurrence: US)
  Receive Date: 20170628
  Receipt Date: 20170628
  Transmission Date: 20170830
  Serious: No
  Sender: FDA-Public Use
  Company Number: None

PATIENT
  Age: 59 Year
  Sex: Female
  Weight: 48.54 kg

DRUGS (3)
  1. CLINDAMYCIN 150MG (40 TABS) [Suspect]
     Active Substance: CLINDAMYCIN
     Indication: ENDODONTIC PROCEDURE
     Route: 048
     Dates: start: 20170525, end: 20170526
  2. ESCITALOPRAM [Concomitant]
     Active Substance: ESCITALOPRAM OXALATE
  3. LEVOTHYROXINE. [Concomitant]
     Active Substance: LEVOTHYROXINE

REACTIONS (3)
  - Decreased appetite [None]
  - Nausea [None]
  - Lethargy [None]

NARRATIVE: CASE EVENT DATE: 20170526
